FAERS Safety Report 8492195-8 (Version None)
Quarter: 2012Q3

REPORT INFORMATION
  Report Type: 
  Country: None (occurrence: None)
  Receive Date: 20120706
  Receipt Date: 20120702
  Transmission Date: 20120928
  Serious: Yes (Hospitalization)
  Sender: FDA-Public Use
  Company Number: US-BAYER-2010-001602

PATIENT
  Age: 16 Year
  Sex: Female
  Weight: 101.13 kg

DRUGS (16)
  1. SINGULAIR [Concomitant]
     Indication: ASTHMA
  2. ALBUTEROL [Concomitant]
     Indication: RHINITIS ALLERGIC
  3. ERY-TAB [Concomitant]
     Dosage: 500 MG DISPENSED 20 TABS, UNK
     Dates: start: 20051103
  4. CLOTRIMAZOLE W/BETAMETHASONE DIPROPIONAT [Concomitant]
     Dosage: UNK
     Dates: start: 20051103
  5. PHENTOLAMINE MESYLATE [Concomitant]
     Dosage: 60 MG SUSPENSION, UNK
     Dates: start: 20051108
  6. ALBUTEROL [Concomitant]
     Indication: ASTHMA
     Dosage: UNK UNK, PRN
  7. ASMANEX TWISTHALER [Concomitant]
     Dosage: 220 ?G, UNK
     Dates: start: 20051130
  8. MIRALAX [Concomitant]
  9. ALEVE [Concomitant]
     Dosage: UNK UNK, PRN
  10. OXYCODONE HCL [Concomitant]
  11. METROGEL [Concomitant]
     Dosage: 0.75 %, UNK
     Dates: start: 20051103
  12. YASMIN [Suspect]
     Indication: PREMENSTRUAL SYNDROME
     Dosage: UNK UNK, QD
     Route: 048
     Dates: start: 20051001, end: 20060101
  13. SINGULAIR [Concomitant]
     Indication: RHINITIS ALLERGIC
     Dosage: UNK
  14. FLUCONAZOLE [Concomitant]
     Dosage: 150 MG TABLET /DISPENSED 1 TABLET, UNK
     Dates: start: 20051103
  15. PREDNISONE [Concomitant]
     Dosage: 10 MG DISPENSED 18 TABS, UNK
     Dates: start: 20051108
  16. AMOXICILLIN AND CLAVULANATE POTASSIUM [Concomitant]
     Dosage: 875-125 MG/DISPENSED 20 TABS, UNK
     Dates: start: 20051130

REACTIONS (2)
  - DEEP VEIN THROMBOSIS [None]
  - PULMONARY EMBOLISM [None]
